FAERS Safety Report 5215183-3 (Version None)
Quarter: 2007Q1

REPORT INFORMATION
  Report Type: 
  Country: None (occurrence: None)
  Receive Date: 20070117
  Receipt Date: 20070104
  Transmission Date: 20070707
  Serious: Yes (Other)
  Sender: FDA-Public Use
  Company Number: 07H-056-0311708-00

PATIENT
  Sex: 0

DRUGS (1)
  1. DOBUTAMINE HCL [Suspect]
     Indication: STRESS ECHOCARDIOGRAM
     Dosage: 10 MCG/KG/MIN, +10 UG/KG/MIN Q 3-5 MIN TIL 40 UG/KG/MIN, INTRAVENOUS INFUSION
     Route: 042

REACTIONS (1)
  - ATRIAL FIBRILLATION [None]
